FAERS Safety Report 7282011-4 (Version None)
Quarter: 2011Q1

REPORT INFORMATION
  Report Type: 
  Country: None (occurrence: None)
  Receive Date: 20110208
  Receipt Date: 20110125
  Transmission Date: 20110831
  Serious: Yes (Hospitalization)
  Sender: FDA-Public Use
  Company Number: JP-AMGEN-JPNCT2010000216

PATIENT
  Age: 69 Year
  Sex: Male
  Weight: 70 kg

DRUGS (23)
  1. FLUOROURACIL [Concomitant]
  2. VOLTAREN [Concomitant]
     Dosage: UNK
     Route: 048
  3. VOLTAREN [Concomitant]
     Route: 048
  4. IRINOTECAN HYDROCHLORIDE [Concomitant]
     Indication: COLORECTAL CANCER
     Dosage: 180 MG, QWK
     Route: 041
     Dates: start: 20100625
  5. PANITUMUMAB [Suspect]
     Indication: COLORECTAL CANCER
     Dosage: 6 MG/KG, QWK
     Route: 041
     Dates: start: 20100625, end: 20100723
  6. FLUOROURACIL [Concomitant]
  7. ZYLORIC [Concomitant]
     Route: 048
  8. CALCIUM LEVOFOLINATE [Concomitant]
     Indication: COLORECTAL CANCER
     Dosage: 300 MG, QWK
     Route: 041
     Dates: start: 20100625
  9. NORVASC [Concomitant]
     Route: 048
  10. PREDONINE [Concomitant]
     Route: 048
  11. FLUOROURACIL [Concomitant]
     Indication: COLORECTAL CANCER
     Dosage: UNK UNK, QWK
     Route: 041
     Dates: start: 20100625
  12. FLUOROURACIL [Concomitant]
  13. LASIX [Concomitant]
     Dosage: UNK
     Route: 048
  14. LASIX [Concomitant]
     Route: 048
  15. PANITUMUMAB [Suspect]
     Dosage: 4.8 MG/KG, Q2WK
     Route: 041
     Dates: start: 20101015, end: 20101112
  16. ANTIHISTAMINES [Concomitant]
     Indication: PROPHYLAXIS
     Dosage: UNK
     Route: 065
  17. PANITUMUMAB [Suspect]
     Dosage: 6 MG/KG, Q2WK
     Route: 041
     Dates: start: 20100819, end: 20100903
  18. CORTICOSTEROIDS [Concomitant]
     Indication: PROPHYLAXIS
     Dosage: UNK
     Route: 065
  19. LEUCON                             /00300201/ [Concomitant]
     Dosage: UNK
     Route: 048
  20. BASEN OD [Concomitant]
     Route: 048
  21. BEZATOL SR [Concomitant]
     Route: 048
  22. LEUCON [Concomitant]
     Route: 048
  23. PREDNISOLONE [Concomitant]
     Dosage: UNK
     Route: 048

REACTIONS (8)
  - DERMATITIS ACNEIFORM [None]
  - BLOOD MAGNESIUM DECREASED [None]
  - INFUSION RELATED REACTION [None]
  - PARONYCHIA [None]
  - EPISTAXIS [None]
  - CELLULITIS [None]
  - BLOOD CREATININE INCREASED [None]
  - COLORECTAL CANCER [None]
